FAERS Safety Report 5640063-9 (Version None)
Quarter: 2008Q1

REPORT INFORMATION
  Report Type: 
  Country: None (occurrence: None)
  Receive Date: 20080227
  Receipt Date: 20080128
  Transmission Date: 20080703
  Serious: No
  Sender: FDA-Public Use
  Company Number: US-BAYER-200812755NA

PATIENT
  Age: 31 Year
  Sex: Female

DRUGS (2)
  1. YAZ [Suspect]
     Indication: CONTRACEPTION
     Route: 048
     Dates: start: 20071001, end: 20071101
  2. YAZ [Suspect]
     Route: 048
     Dates: start: 20071201

REACTIONS (2)
  - DRUG DOSE OMISSION [None]
  - WITHDRAWAL BLEEDING IRREGULAR [None]
